FAERS Safety Report 7198838-3 (Version None)
Quarter: 2010Q4

REPORT INFORMATION
  Report Type: 
  Country: None (occurrence: None)
  Receive Date: 20101227
  Receipt Date: 20101213
  Transmission Date: 20110411
  Serious: Yes (Death)
  Sender: FDA-Public Use
  Company Number: JP-ABBOTT-10P-087-0640504-00

PATIENT
  Age: 84 Year
  Sex: Male
  Weight: 55.5 kg

DRUGS (5)
  1. LEUPROLIDE ACETATE [Suspect]
     Indication: PROSTATE CANCER STAGE II
     Route: 058
     Dates: start: 20061127, end: 20080109
  2. LUPRON DEPOT [Suspect]
     Indication: PROSTATE CANCER
     Dates: start: 20041006, end: 20061030
  3. CHLORMADINONE ACETATE TAB [Concomitant]
     Indication: PROSTATE CANCER STAGE II
     Route: 048
     Dates: end: 20080109
  4. JUVELA N [Concomitant]
     Indication: ANGINA PECTORIS
     Route: 048
     Dates: end: 20080109
  5. EPADEL-S [Concomitant]
     Indication: ANGINA PECTORIS
     Route: 048
     Dates: end: 20080109

REACTIONS (1)
  - CHRONIC RESPIRATORY FAILURE [None]
